FAERS Safety Report 11341809 (Version 2)
Quarter: 2015Q3

REPORT INFORMATION
  Report Type: Spontaneous
  Country: US (occurrence: US)
  Receive Date: 20150805
  Receipt Date: 20150811
  Transmission Date: 20151125
  Serious: Yes (Death, Hospitalization)
  Sender: FDA-Public Use
  Company Number: US-HORIZON-RAV-0054-2015

PATIENT
  Age: 5 Year
  Sex: Female

DRUGS (4)
  1. L-ARGININE [Concomitant]
     Active Substance: ARGININE
  2. RAVICTI [Suspect]
     Active Substance: GLYCEROL PHENYLBUTYRATE
     Indication: UREA CYCLE ENZYME DEFICIENCY
     Dates: start: 201310
  3. KLONOPIN [Concomitant]
     Active Substance: CLONAZEPAM
  4. KEPPRA [Concomitant]
     Active Substance: LEVETIRACETAM

REACTIONS (4)
  - Urosepsis [Fatal]
  - Hyperammonaemic crisis [Fatal]
  - Kidney infection [Unknown]
  - Brain oedema [Fatal]

NARRATIVE: CASE EVENT DATE: 201507
